FAERS Safety Report 24545690 (Version 1)
Quarter: 2024Q4

REPORT INFORMATION
  Report Type: Spontaneous
  Country: US (occurrence: US)
  Receive Date: 20241024
  Receipt Date: 20241024
  Transmission Date: 20250114
  Serious: No
  Sender: BAUSCH AND LOMB
  Company Number: US-BAUSCH-BL-2024-015722

PATIENT
  Sex: Female

DRUGS (1)
  1. PYRIDOSTIGMINE BROMIDE [Suspect]
     Active Substance: PYRIDOSTIGMINE BROMIDE
     Indication: Myasthenia gravis
     Route: 065
     Dates: start: 20241018

REACTIONS (4)
  - Throat irritation [Unknown]
  - Cough [Unknown]
  - Night sweats [Unknown]
  - Muscular weakness [Unknown]

NARRATIVE: CASE EVENT DATE: 20241001
